FAERS Safety Report 8263016 (Version 4)
Quarter: 2013Q1

REPORT INFORMATION
  Report Type: Report from Study
  Country: IN (occurrence: IN)
  Receive Date: 20111125
  Receipt Date: 20130208
  Transmission Date: 20140127
  Serious: Yes (Death, Disabling, Other)
  Sender: FDA-Public Use
  Company Number: IN-AMGEN-UK358535

PATIENT
  Age: 67 Year
  Sex: Male
  Weight: 47.6 kg

DRUGS (1)
  1. DARBEPOETIN ALFA [Suspect]
     Indication: CARDIAC FAILURE
     Dosage: UNK UNK, Q2WK
     Route: 058
     Dates: start: 20090727, end: 20090727

REACTIONS (5)
  - Myocardial infarction [Fatal]
  - Cardio-respiratory arrest [Fatal]
  - Dyspnoea [Not Recovered/Not Resolved]
  - Nausea [Not Recovered/Not Resolved]
  - Tension [Not Recovered/Not Resolved]
